FAERS Safety Report 4290879-9 (Version None)
Quarter: 2004Q1

REPORT INFORMATION
  Report Type: 
  Country: None (occurrence: None)
  Receive Date: 20040209
  Receipt Date: 20040128
  Transmission Date: 20041129
  Serious: Yes (Hospitalization)
  Sender: FDA-Public Use
  Company Number: DE-JNJFOC-20040200022

PATIENT
  Age: 74 Year
  Sex: Female
  Weight: 65 kg

DRUGS (14)
  1. REMICADE [Suspect]
     Indication: RHEUMATOID ARTHRITIS
     Dosage: SEE IMAGE
     Route: 042
     Dates: start: 20021127, end: 20021127
  2. REMICADE [Suspect]
     Indication: RHEUMATOID ARTHRITIS
     Dosage: SEE IMAGE
     Route: 042
     Dates: start: 20021212, end: 20021212
  3. REMICADE [Suspect]
     Indication: RHEUMATOID ARTHRITIS
     Dosage: SEE IMAGE
     Route: 042
     Dates: start: 20030113, end: 20030113
  4. REMICADE [Suspect]
     Indication: RHEUMATOID ARTHRITIS
     Dosage: SEE IMAGE
     Route: 042
     Dates: start: 20030310, end: 20030310
  5. REMICADE [Suspect]
     Indication: RHEUMATOID ARTHRITIS
     Dosage: SEE IMAGE
     Route: 042
     Dates: start: 20030611, end: 20030611
  6. REMICADE [Suspect]
     Indication: RHEUMATOID ARTHRITIS
     Dosage: SEE IMAGE
     Route: 042
     Dates: start: 20031002, end: 20031002
  7. CYNT (MOXONIDINE) [Concomitant]
  8. ATACAND [Concomitant]
  9. FOSANAX (ALENDRONATE SODIUM) [Concomitant]
  10. METHOTREXATE [Concomitant]
  11. FOLICAN (FOLIC ACID) [Concomitant]
  12. PREDNISOLONE [Concomitant]
  13. ANAPRANIL (NAAPROXEN SODIUM) [Concomitant]
  14. AMINOPHYLINE (THEOPHYLLINE MONOETHANOLAMINE) [Concomitant]

REACTIONS (1)
  - FOOT OPERATION [None]
